FAERS Safety Report 5365886-5 (Version None)
Quarter: 2007Q2

REPORT INFORMATION
  Report Type: 
  Country: None (occurrence: None)
  Receive Date: 20070621
  Receipt Date: 20070611
  Transmission Date: 20071010
  Serious: Yes (Hospitalization)
  Sender: FDA-Public Use
  Company Number: JP-MERCK-0706USA02633

PATIENT
  Age: 83 Year
  Sex: Male

DRUGS (9)
  1. COZAAR [Suspect]
     Indication: HYPERTENSION
     Route: 048
     Dates: start: 20070423, end: 20070525
  2. NORVASC [Concomitant]
     Indication: HYPERTENSION
     Route: 048
  3. LEVOFLOXACIN [Concomitant]
     Route: 048
  4. LOXONIN [Concomitant]
     Route: 048
  5. SIGMART [Concomitant]
     Route: 048
  6. GEFANIL [Concomitant]
     Route: 048
  7. EPADEL [Concomitant]
     Route: 048
  8. ASPIRIN [Concomitant]
     Route: 048
  9. EUTENSIN [Concomitant]
     Route: 048

REACTIONS (1)
  - ANGINA UNSTABLE [None]
